FAERS Safety Report 10379315 (Version 1)
Quarter: 2014Q3

REPORT INFORMATION
  Report Type: Spontaneous
  Country: JP (occurrence: JP)
  Receive Date: 20140812
  Receipt Date: 20140812
  Transmission Date: 20150326
  Serious: No
  Sender: FDA-Public Use
  Company Number: PHHY2014JP098559

PATIENT
  Age: 77 Year
  Sex: Male

DRUGS (2)
  1. TASIGNA [Suspect]
     Active Substance: NILOTINIB
     Dosage: 600 MG, DAILY
  2. DASATINIB [Suspect]
     Active Substance: DASATINIB
     Dosage: 20 MG

REACTIONS (5)
  - Electrocardiogram QT prolonged [Unknown]
  - Liver disorder [Unknown]
  - Rash [Unknown]
  - Pleural effusion [Unknown]
  - Haematuria [Unknown]
